FAERS Safety Report 10098208 (Version 1)
Quarter: 2014Q2

REPORT INFORMATION
  Report Type: Spontaneous
  Country: US (occurrence: US)
  Receive Date: 20140423
  Receipt Date: 20140423
  Transmission Date: 20141212
  Serious: Yes (Other)
  Sender: FDA-Public Use
  Company Number: US-BRISTOL-MYERS SQUIBB COMPANY-20089405

PATIENT
  Sex: Male

DRUGS (1)
  1. YERVOY [Suspect]
     Dates: start: 201302

REACTIONS (1)
  - Malignant neoplasm progression [Unknown]
